FAERS Safety Report 17898433 (Version 1)
Quarter: 2020Q2

REPORT INFORMATION
  Report Type: Report from Study
  Country: US (occurrence: US)
  Receive Date: 20200615
  Receipt Date: 20200615
  Transmission Date: 20200714
  Serious: Yes (Hospitalization)
  Sender: FDA-Public Use
  Company Number: US-TAKEDA-2019TUS007837

PATIENT
  Age: 69 Year
  Sex: Male

DRUGS (4)
  1. PONATINIB [Suspect]
     Active Substance: PONATINIB
     Indication: ACUTE MYELOID LEUKAEMIA
     Dosage: 30 MILLIGRAM, QD
     Route: 048
     Dates: start: 20190201
  2. PONATINIB [Suspect]
     Active Substance: PONATINIB
     Indication: CHRONIC MYELOID LEUKAEMIA
  3. VITAMIN D3 [Concomitant]
     Active Substance: CHOLECALCIFEROL
     Dosage: UNK
     Route: 065
  4. MAGNESIUM OXIDE. [Concomitant]
     Active Substance: MAGNESIUM OXIDE
     Dosage: UNK

REACTIONS (11)
  - Malaise [Unknown]
  - Muscle spasms [Recovered/Resolved]
  - Dyspepsia [Recovered/Resolved]
  - Abdominal distension [Unknown]
  - Oesophageal disorder [Unknown]
  - Blood glucose increased [Unknown]
  - Flatulence [Recovered/Resolved]
  - Weight decreased [Unknown]
  - Dysphagia [Unknown]
  - Feeding disorder [Unknown]
  - Off label use [Unknown]

NARRATIVE: CASE EVENT DATE: 20190201
